FAERS Safety Report 9672745 (Version 1)
Quarter: 2013Q4

REPORT INFORMATION
  Report Type: Spontaneous
  Country: US (occurrence: US)
  Receive Date: 20131106
  Receipt Date: 20131106
  Transmission Date: 20140711
  Serious: No
  Sender: FDA-Public Use
  Company Number: US-AMGEN-USASP2013068217

PATIENT
  Age: 66 Year
  Sex: Female

DRUGS (2)
  1. ENBREL [Suspect]
     Indication: RHEUMATOID ARTHRITIS
     Dosage: 50 MG, QWK
     Route: 065
     Dates: start: 2000
  2. HUMIRA [Concomitant]
     Dosage: 40 MG, Q2WK

REACTIONS (6)
  - Mobility decreased [Not Recovered/Not Resolved]
  - Arthralgia [Not Recovered/Not Resolved]
  - Pain in extremity [Not Recovered/Not Resolved]
  - Grip strength decreased [Not Recovered/Not Resolved]
  - Nodule [Not Recovered/Not Resolved]
  - Gait disturbance [Not Recovered/Not Resolved]
